FAERS Safety Report 5332977-4 (Version None)
Quarter: 2007Q1

REPORT INFORMATION
  Report Type: 
  Country: None (occurrence: None)
  Receive Date: 20070306
  Receipt Date: 20061116
  Transmission Date: 20070707
  Serious: Yes (Hospitalization)
  Sender: FDA-Public Use
  Company Number: A03200606921

PATIENT

DRUGS (10)
  1. PLAVIX [Suspect]
     Dosage: ORAL
     Route: 048
     Dates: end: 20060801
  2. ACETYLSALICYLIC ACID SRT [Concomitant]
  3. ATORVASTATIN [Concomitant]
  4. DIGOXIN [Concomitant]
  5. DILTIAZEM HYDROCHLORIDE [Concomitant]
  6. ENALAPRIL MALEATE [Concomitant]
  7. ROPINIROLE HCL [Concomitant]
  8. DEXTROPROPOXYPHENE HYDROCHLORIDE [Concomitant]
  9. LANSOPRAZOLE [Concomitant]
  10. NSAID NOS [Concomitant]

REACTIONS (1)
  - IRON DEFICIENCY ANAEMIA [None]
